FAERS Safety Report 20809493 (Version 2)
Quarter: 2022Q3

REPORT INFORMATION
  Report Type: Report from Study
  Country: DE (occurrence: DE)
  Receive Date: 20220510
  Receipt Date: 20220920
  Transmission Date: 20221026
  Serious: Yes (Other)
  Sender: FDA-Public Use
  Company Number: DE-TAKEDA-2022TUS024237

PATIENT
  Age: 32 Year
  Sex: Male

DRUGS (25)
  1. TEDUGLUTIDE [Suspect]
     Active Substance: TEDUGLUTIDE
     Indication: Short-bowel syndrome
     Dosage: 3 MILLIGRAM, QD
     Route: 042
     Dates: start: 20180405, end: 20180904
  2. TEDUGLUTIDE [Suspect]
     Active Substance: TEDUGLUTIDE
     Indication: Short-bowel syndrome
     Dosage: 3 MILLIGRAM, QD
     Route: 042
     Dates: start: 20180405, end: 20180904
  3. TEDUGLUTIDE [Suspect]
     Active Substance: TEDUGLUTIDE
     Indication: Short-bowel syndrome
     Dosage: 3 MILLIGRAM, QD
     Route: 042
     Dates: start: 20180405, end: 20180904
  4. TEDUGLUTIDE [Suspect]
     Active Substance: TEDUGLUTIDE
     Indication: Short-bowel syndrome
     Dosage: 3 MILLIGRAM, QD
     Route: 042
     Dates: start: 20180405, end: 20180904
  5. TEDUGLUTIDE [Suspect]
     Active Substance: TEDUGLUTIDE
     Dosage: 3.2 MILLIGRAM, QD
     Route: 042
     Dates: start: 20180905, end: 20200715
  6. TEDUGLUTIDE [Suspect]
     Active Substance: TEDUGLUTIDE
     Dosage: 3.2 MILLIGRAM, QD
     Route: 042
     Dates: start: 20180905, end: 20200715
  7. TEDUGLUTIDE [Suspect]
     Active Substance: TEDUGLUTIDE
     Dosage: 3.2 MILLIGRAM, QD
     Route: 042
     Dates: start: 20180905, end: 20200715
  8. TEDUGLUTIDE [Suspect]
     Active Substance: TEDUGLUTIDE
     Dosage: 3.2 MILLIGRAM, QD
     Route: 042
     Dates: start: 20180905, end: 20200715
  9. AZITHROMYCIN [Concomitant]
     Active Substance: AZITHROMYCIN
     Indication: Gastroenteritis
     Dosage: 99999 UNK
     Route: 065
     Dates: start: 20210904, end: 20210906
  10. MEROPENEM [Concomitant]
     Active Substance: MEROPENEM
     Indication: Gastroenteritis
     Dosage: UNK
     Route: 065
     Dates: start: 2021, end: 20210903
  11. CHOLESTYRAMINE [Concomitant]
     Active Substance: CHOLESTYRAMINE
     Indication: Product used for unknown indication
     Dosage: UNK
     Route: 048
     Dates: start: 20200422, end: 2020
  12. CHOLESTYRAMINE [Concomitant]
     Active Substance: CHOLESTYRAMINE
     Dosage: UNK
     Route: 048
     Dates: start: 20210407, end: 202205
  13. CHOLESTYRAMINE [Concomitant]
     Active Substance: CHOLESTYRAMINE
     Dosage: UNK, BID
     Route: 048
     Dates: start: 20220601
  14. PANTOPRAZOLE [Concomitant]
     Active Substance: PANTOPRAZOLE
     Indication: Gastric pH decreased
     Dosage: 40 MILLIGRAM, BID
     Route: 048
     Dates: start: 201806, end: 2020
  15. PANTOPRAZOLE [Concomitant]
     Active Substance: PANTOPRAZOLE
     Dosage: 40 MILLIGRAM, QD
     Route: 048
     Dates: start: 20210407
  16. POTASSIUM [Concomitant]
     Active Substance: POTASSIUM
     Indication: Hypokalaemia
     Dosage: UNK
     Route: 042
     Dates: start: 202109, end: 202109
  17. OMEPRAZOLE [Concomitant]
     Active Substance: OMEPRAZOLE
     Indication: Gastric pH decreased
     Dosage: 10 MILLIGRAM
     Route: 048
     Dates: end: 2018
  18. URSODIOL [Concomitant]
     Active Substance: URSODIOL
     Indication: Prophylaxis
     Dosage: 500 MILLIGRAM
     Route: 048
     Dates: end: 20190704
  19. URSODIOL [Concomitant]
     Active Substance: URSODIOL
     Dosage: 750 MILLIGRAM, BID
     Route: 048
     Dates: start: 20190705
  20. DIETARY SUPPLEMENT\HERBALS\MILK THISTLE [Concomitant]
     Active Substance: DIETARY SUPPLEMENT\HERBALS\MILK THISTLE
     Indication: Liver disorder
     Dosage: 528.5 MILLIGRAM
     Route: 048
     Dates: end: 2018
  21. RIFAXIMIN [Concomitant]
     Active Substance: RIFAXIMIN
     Indication: Lactic acidosis
     Dosage: 200 MILLIGRAM, BID
     Route: 048
     Dates: start: 201806, end: 201807
  22. ESCHERICHIA COLI [Concomitant]
     Active Substance: ESCHERICHIA COLI
     Indication: Lactic acidosis
     Dosage: UNK, BID
     Route: 048
     Dates: start: 201806, end: 2019
  23. LOPERAMIDE [Concomitant]
     Active Substance: LOPERAMIDE
     Dosage: 2 MILLIGRAM
     Route: 048
     Dates: start: 20200422
  24. DIETARY SUPPLEMENT\HERBALS\MILK THISTLE [Concomitant]
     Active Substance: DIETARY SUPPLEMENT\HERBALS\MILK THISTLE
     Dosage: 200 MILLIGRAM, BID
     Route: 048
     Dates: start: 2019, end: 2021
  25. Legalon forte [Concomitant]
     Dosage: UNK UNK, QD
     Route: 065
     Dates: start: 20220601

REACTIONS (1)
  - Hyperkalaemia [Recovered/Resolved]

NARRATIVE: CASE EVENT DATE: 20220202
